FAERS Safety Report 6863058-6 (Version None)
Quarter: 2010Q3

REPORT INFORMATION
  Report Type: 
  Country: None (occurrence: None)
  Receive Date: 20100721
  Receipt Date: 20100608
  Transmission Date: 20110219
  Serious: Yes (Death, Life-Threatening, Other)
  Sender: FDA-Public Use
  Company Number: US-BAXTER-2008BH009981

PATIENT
  Age: 83 Year
  Sex: Male

DRUGS (25)
  1. HEPARIN SODIUM [Suspect]
     Indication: ATRIAL FIBRILLATION
     Route: 058
     Dates: start: 20080118, end: 20080118
  2. HEPARIN SODIUM [Suspect]
     Indication: PROPHYLAXIS
     Route: 058
     Dates: start: 20080118, end: 20080118
  3. HEPARIN SODIUM [Suspect]
     Route: 042
     Dates: start: 20080119, end: 20080119
  4. HEPARIN SODIUM [Suspect]
     Route: 042
     Dates: start: 20080119, end: 20080119
  5. HEPARIN SODIUM [Suspect]
     Route: 042
     Dates: start: 20080118, end: 20080121
  6. HEPARIN SODIUM [Suspect]
     Route: 042
     Dates: start: 20080118, end: 20080121
  7. HEPARIN SODIUM [Suspect]
     Route: 042
     Dates: start: 20080124, end: 20080124
  8. HEPARIN SODIUM [Suspect]
     Route: 042
     Dates: start: 20080124, end: 20080124
  9. HEPARIN SODIUM [Suspect]
     Route: 042
     Dates: start: 20080128, end: 20080128
  10. HEPARIN SODIUM [Suspect]
     Route: 042
     Dates: start: 20080128, end: 20080128
  11. HEPARIN SODIUM [Suspect]
     Route: 042
     Dates: start: 20080202, end: 20080208
  12. HEPARIN SODIUM [Suspect]
     Route: 042
     Dates: start: 20080202, end: 20080208
  13. HEPARIN SODIUM [Suspect]
     Route: 040
     Dates: start: 20080118, end: 20080118
  14. HEPARIN SODIUM [Suspect]
     Route: 040
     Dates: start: 20080118, end: 20080118
  15. HEPARIN SODIUM 1,000 UNITS AND SODIUM CHLORIDE 0.9% [Suspect]
     Indication: ATRIAL FIBRILLATION
     Route: 042
     Dates: start: 20080119, end: 20080124
  16. ASPIRIN [Concomitant]
     Indication: PRODUCT USED FOR UNKNOWN INDICATION
     Route: 048
  17. SYNTHROID [Concomitant]
     Indication: PRODUCT USED FOR UNKNOWN INDICATION
     Route: 048
  18. NEXIUM [Concomitant]
     Indication: PRODUCT USED FOR UNKNOWN INDICATION
     Route: 048
  19. ACCUPRIL [Concomitant]
     Indication: PRODUCT USED FOR UNKNOWN INDICATION
     Route: 065
  20. NITROGLYCERIN [Concomitant]
     Indication: PRODUCT USED FOR UNKNOWN INDICATION
     Route: 061
  21. LASIX [Concomitant]
     Indication: PRODUCT USED FOR UNKNOWN INDICATION
     Route: 048
  22. COREG [Concomitant]
     Indication: PRODUCT USED FOR UNKNOWN INDICATION
     Route: 048
  23. AVELOX [Concomitant]
     Indication: PRODUCT USED FOR UNKNOWN INDICATION
     Route: 042
  24. NPH INSULIN [Concomitant]
     Indication: PRODUCT USED FOR UNKNOWN INDICATION
     Route: 058
  25. NOVOLOG [Concomitant]
     Indication: PRODUCT USED FOR UNKNOWN INDICATION
     Route: 058

REACTIONS (23)
  - ANAEMIA [None]
  - ATRIAL FIBRILLATION [None]
  - BLOOD POTASSIUM DECREASED [None]
  - CARDIAC FAILURE [None]
  - CARDIOMYOPATHY [None]
  - CONDITION AGGRAVATED [None]
  - COUGH [None]
  - DEATH [None]
  - EXTRASYSTOLES [None]
  - FATIGUE [None]
  - HAEMATURIA [None]
  - HAEMORRHAGE [None]
  - HYPERNATRAEMIA [None]
  - LETHARGY [None]
  - MENTAL STATUS CHANGES [None]
  - METABOLIC ACIDOSIS [None]
  - OEDEMA [None]
  - PALLOR [None]
  - RENAL FAILURE ACUTE [None]
  - SEPTIC SHOCK [None]
  - SKIN DISORDER [None]
  - THROMBOSIS [None]
  - URINARY TRACT INFECTION [None]
